FAERS Safety Report 9687887 (Version 2)
Quarter: 2014Q1

REPORT INFORMATION
  Report Type: Spontaneous
  Country: US (occurrence: US)
  Receive Date: 20131114
  Receipt Date: 20140108
  Transmission Date: 20141002
  Serious: No
  Sender: FDA-Public Use
  Company Number: US-009507513-1311USA004073

PATIENT
  Age: 20 Year
  Sex: Female
  Weight: 73.47 kg

DRUGS (4)
  1. NEXPLANON [Suspect]
     Indication: CONTRACEPTION
     Dosage: 1 DF(1 ROD), UNK
     Route: 059
     Dates: start: 20130530
  2. CLARITIN [Concomitant]
     Indication: HYPERSENSITIVITY
     Dosage: UNKNOWN
     Route: 048
  3. ZANTAC [Concomitant]
     Indication: REFLUX GASTRITIS
     Dosage: TOTAL DAILY DOSE: 1 PILL, 75 MG PRN
     Route: 048
  4. MITOMYCIN [Concomitant]

REACTIONS (4)
  - Gingival bleeding [Unknown]
  - Pain [Unknown]
  - Implant site haematoma [Unknown]
  - Contusion [Recovered/Resolved]
